FAERS Safety Report 8091195 (Version 2)
Quarter: 2013Q1

REPORT INFORMATION
  Report Type: Spontaneous
  Country: JP (occurrence: None)
  Receive Date: 20110808
  Receipt Date: 20121221
  Transmission Date: 20140127
  Serious: Yes (Other)
  Sender: FDA-Public Use
  Company Number: JP-ACCORD-010163

PATIENT
  Age: 58 Year
  Sex: 0

DRUGS (3)
  1. PACLITAXEL [Suspect]
     Indication: BREAST CANCER
  2. DOXORUBICIN (DOXORUBICIN) (DOXORUBICIN) [Suspect]
     Indication: BREAST CANCER
  3. EXEMESTANE [Suspect]
     Indication: BREAST CANCER

REACTIONS (3)
  - Pain [None]
  - Asthenia [None]
  - Neuropathy peripheral [None]
